FAERS Safety Report 17735649 (Version 1)
Quarter: 2020Q2

REPORT INFORMATION
  Report Type: Spontaneous
  Country: GB (occurrence: GB)
  Receive Date: 20200501
  Receipt Date: 20200501
  Transmission Date: 20200714
  Serious: Yes (Hospitalization)
  Sender: FDA-Public Use
  Company Number: GB-MYLANLABS-2020M1042988

PATIENT
  Sex: Male

DRUGS (7)
  1. BICALUTAMIDE. [Concomitant]
     Active Substance: BICALUTAMIDE
     Dosage: 150 MILLIGRAM, QD
     Route: 048
     Dates: end: 20200116
  2. LACTULOSE. [Concomitant]
     Active Substance: LACTULOSE
     Indication: HEPATIC ENCEPHALOPATHY
     Dosage: UNK
     Dates: start: 20200114
  3. AMLODIPINE [Concomitant]
     Active Substance: AMLODIPINE BESYLATE
     Dosage: MORNING
     Route: 048
  4. ATORVASTATIN [Concomitant]
     Active Substance: ATORVASTATIN
     Dosage: NIGHT
     Route: 048
     Dates: end: 20200116
  5. THIAMINE. [Concomitant]
     Active Substance: THIAMINE
     Dosage: 100 MILLIGRAM, QD
     Route: 048
  6. TAMOXIFEN [Suspect]
     Active Substance: TAMOXIFEN
     Indication: PROSTATE CANCER
     Dosage: 40 MILLIGRAM, QW
     Route: 048
     Dates: start: 2015, end: 20200120
  7. AZITHROMYCIN ANHYDROUS. [Concomitant]
     Active Substance: AZITHROMYCIN ANHYDROUS
     Indication: CELLULITIS
     Dosage: 20 MILLIGRAM
     Dates: start: 20200111

REACTIONS (5)
  - Tremor [Unknown]
  - Cerebral venous thrombosis [Recovering/Resolving]
  - Confusional state [Recovering/Resolving]
  - Hypophagia [Unknown]
  - Balance disorder [Unknown]

NARRATIVE: CASE EVENT DATE: 202001
